FAERS Safety Report 4544874-2 (Version None)
Quarter: 2005Q1

REPORT INFORMATION
  Report Type: 
  Country: None (occurrence: None)
  Receive Date: 20050103
  Receipt Date: 20050103
  Transmission Date: 20050727
  Serious: Yes (Hospitalization)
  Sender: FDA-Public Use
  Company Number: None

PATIENT
  Age: 72 Year
  Sex: Male
  Weight: 79.3795 kg

DRUGS (1)
  1. PIROXICAM [Suspect]
     Indication: ARTHRITIS
     Dosage: 20 MG  QD  ORAL
     Route: 048
     Dates: start: 20040610, end: 20041227

REACTIONS (1)
  - GASTROINTESTINAL HAEMORRHAGE [None]
